FAERS Safety Report 25215003 (Version 3)
Quarter: 2025Q3

REPORT INFORMATION
  Report Type: Spontaneous
  Country: US (occurrence: US)
  Receive Date: 20250418
  Receipt Date: 20250715
  Transmission Date: 20251021
  Serious: No
  Sender: PFIZER
  Company Number: US-PFIZER INC-202500080393

PATIENT
  Age: 75 Year
  Sex: Female

DRUGS (5)
  1. TUKYSA [Suspect]
     Active Substance: TUCATINIB
     Indication: Breast cancer female
     Dosage: 300 MG, 2X/DAY (150 MG TAKE TWO TABLETS BY MOUTH TWICE DAILY)
     Route: 048
     Dates: start: 20240201
  2. XELODA [Concomitant]
     Active Substance: CAPECITABINE
     Dosage: 1500 MG, 2X/DAY (14 DAYS THEN 7 DAYS OFF)
     Dates: start: 20240201
  3. XGEVA [Concomitant]
     Active Substance: DENOSUMAB
     Dates: start: 20240201
  4. LETROZOLE [Concomitant]
     Active Substance: LETROZOLE
     Dates: start: 20240201
  5. HERCEPTIN HYLECTA [Concomitant]
     Active Substance: HYALURONIDASE-OYSK\TRASTUZUMAB
     Dosage: UNK, ONCE EVERY 3 WEEKS
     Dates: start: 20240201

REACTIONS (6)
  - Nausea [Unknown]
  - Gastrooesophageal reflux disease [Unknown]
  - Epigastric discomfort [Unknown]
  - Stomatitis [Recovered/Resolved]
  - Asthenia [Unknown]
  - Hyperchlorhydria [Recovering/Resolving]
